FAERS Safety Report 19706849 (Version 1)
Quarter: 2021Q3

REPORT INFORMATION
  Report Type: Spontaneous
  Country: CA (occurrence: CA)
  Receive Date: 20210817
  Receipt Date: 20210817
  Transmission Date: 20211014
  Serious: Yes (Hospitalization)
  Sender: FDA-Public Use
  Company Number: CA-ASTRAZENECA-2021A673861

PATIENT
  Age: 17 Year
  Sex: Female

DRUGS (4)
  1. CLONAZEPAM. [Concomitant]
     Active Substance: CLONAZEPAM
     Route: 065
  2. QUETIAPINE. [Suspect]
     Active Substance: QUETIAPINE
     Indication: MENTAL DISORDER
     Dosage: UNKNOWN
     Route: 048
  3. LORAZEPAM. [Concomitant]
     Active Substance: LORAZEPAM
  4. LOXAPINE. [Concomitant]
     Active Substance: LOXAPINE

REACTIONS (7)
  - Chills [Unknown]
  - Tardive dyskinesia [Unknown]
  - Tinnitus [Unknown]
  - Vomiting [Unknown]
  - Haematemesis [Unknown]
  - Nausea [Unknown]
  - Headache [Unknown]
